FAERS Safety Report 7691105-0 (Version None)
Quarter: 2011Q3

REPORT INFORMATION
  Report Type: 
  Country: None (occurrence: None)
  Receive Date: 20110815
  Receipt Date: 20110808
  Transmission Date: 20111222
  Serious: Yes (Other)
  Sender: FDA-Public Use
  Company Number: A0940143A

PATIENT
  Age: 74 Year
  Sex: Female

DRUGS (5)
  1. ACETAMINOPHEN [Suspect]
     Indication: MIGRAINE
  2. IBUPROFEN [Suspect]
     Indication: MIGRAINE
  3. ASPIRIN + CAFFEINE + PARACETAMOL (FORMULATION UNKNOWN) (ACETAMINOPHEN [Suspect]
     Indication: MIGRAINE
  4. ASPIRIN [Suspect]
     Indication: MIGRAINE
  5. ASPIRIN + CAFFEINE + SALICYLAMIDE (FORMULATION UNKNOWN) (ASPIRIN+CAFFE [Suspect]
     Indication: MIGRAINE

REACTIONS (2)
  - GASTRIC ULCER [None]
  - OESOPHAGITIS [None]
